FAERS Safety Report 7657281-0 (Version None)
Quarter: 2011Q3

REPORT INFORMATION
  Report Type: 
  Country: None (occurrence: None)
  Receive Date: 20110804
  Receipt Date: 20110726
  Transmission Date: 20111222
  Serious: Yes (Disabling, Other)
  Sender: FDA-Public Use
  Company Number: PHEH2009US16955

PATIENT
  Sex: Male

DRUGS (68)
  1. FOLIC ACID [Concomitant]
     Dosage: 1 MG, UNK
  2. METRONIDAZOLE [Concomitant]
  3. ACCUPRIL [Concomitant]
  4. LOPROX [Concomitant]
  5. FAMVIR [Concomitant]
  6. NEUPOGEN [Concomitant]
  7. CYCLOBENZAPRINE [Concomitant]
  8. PHENAZOPYRIDINE HCL TAB [Concomitant]
  9. MUPIROCIN [Concomitant]
  10. AVAPRO [Concomitant]
     Dosage: 150 MG, UNK
  11. LIDOCAINE [Concomitant]
  12. GLUCOTROL [Concomitant]
  13. LEVAQUIN [Concomitant]
  14. AZMACORT [Concomitant]
  15. TARCEVA [Concomitant]
  16. PREDNISOLONE ACETATE [Concomitant]
  17. LORAZEPAM [Concomitant]
  18. INSULIN [Concomitant]
  19. CLINDAMYCIN [Concomitant]
     Dosage: 150 MG, UNK
  20. PENICILLIN VK [Concomitant]
     Dosage: 500 MG, UNK
  21. DEXAMETHASONE [Concomitant]
     Dosage: 4 MG, UNK
  22. FLOMAX [Concomitant]
  23. NASONEX [Concomitant]
  24. VYTORIN [Concomitant]
  25. FLUCONAZOLE [Concomitant]
  26. FINASTERIDE [Concomitant]
  27. METOPROLOL TARTRATE [Concomitant]
  28. ALPRAZOLAM [Concomitant]
     Dosage: 0.5 MG, UNK
  29. CHLORHEXIDINE GLUCONATE [Concomitant]
  30. CARISOPRODOL [Concomitant]
     Dosage: 350 MG, UNK
  31. POTASSIUM CHLORIDE [Concomitant]
     Dosage: 10 MEQ, UNK
  32. LIPITOR [Concomitant]
  33. ZYRTEC [Concomitant]
  34. GUAIFED-PD [Concomitant]
  35. HYDROCODONE [Concomitant]
  36. QUINAPRIL HCL [Concomitant]
  37. ZITHROMAX [Concomitant]
  38. PROCHLORPERAZINE [Concomitant]
  39. DUONEB [Concomitant]
  40. HYDROMORPHONE HCL [Concomitant]
  41. ONDANSETRON [Concomitant]
  42. ZOMETA [Suspect]
  43. FUROSEMIDE [Concomitant]
     Dosage: 40 MG, UNK
  44. ACTOS [Concomitant]
  45. ZOVIRAX [Concomitant]
  46. AUGMENTIN '125' [Concomitant]
  47. BENZONATATE [Concomitant]
  48. ADVANTAGE [Concomitant]
  49. ARANESP [Concomitant]
  50. ZETIA [Concomitant]
  51. CEPHALEXIN [Concomitant]
  52. VALTREX [Concomitant]
  53. ATACAND [Concomitant]
  54. NEXIUM [Concomitant]
  55. DURAGESIC-100 [Concomitant]
  56. SIMVASTATIN [Concomitant]
  57. NOVOBIOCIN [Concomitant]
  58. TUSSIONEX [Concomitant]
  59. PROTONIX [Concomitant]
  60. SERTRALINE HYDROCHLORIDE [Concomitant]
  61. ATROP [Concomitant]
     Dosage: 2.5 MG, UNK
  62. LANTUS [Concomitant]
  63. OXYCOD [Concomitant]
  64. PROMETHAZINE W/ CODEINE [Concomitant]
  65. HUMIBID [Concomitant]
  66. DOXYCYCLA [Concomitant]
  67. CIPROFLAXACIN [Concomitant]
  68. NAPROXEN [Concomitant]

REACTIONS (19)
  - HAND FRACTURE [None]
  - INJURY [None]
  - DYSPNOEA [None]
  - COUGH [None]
  - METASTASES TO LIVER [None]
  - PNEUMOTHORAX [None]
  - PAIN IN EXTREMITY [None]
  - ANHEDONIA [None]
  - HILAR LYMPHADENOPATHY [None]
  - PAIN [None]
  - ANXIETY [None]
  - HEPATIC MASS [None]
  - NON-SMALL CELL LUNG CANCER METASTATIC [None]
  - INGROWING NAIL [None]
  - PULMONARY MASS [None]
  - OSTEONECROSIS OF JAW [None]
  - METASTASES TO SPINE [None]
  - HYPOACUSIS [None]
  - PARONYCHIA [None]
